FAERS Safety Report 6527803-1 (Version None)
Quarter: 2010Q1

REPORT INFORMATION
  Report Type: 
  Country: None (occurrence: None)
  Receive Date: 20100106
  Receipt Date: 20091229
  Transmission Date: 20100710
  Serious: Yes (Other)
  Sender: FDA-Public Use
  Company Number: US-ROCHE-677393

PATIENT
  Sex: Female
  Weight: 63.5 kg

DRUGS (1)
  1. CAPECITABINE [Suspect]
     Indication: COLORECTAL CANCER
     Dosage: FREQUENCY: 2 WEEKS ON AND ONE WEEK OFF (4 TABS BID)
     Route: 048
     Dates: start: 20091113, end: 20091229

REACTIONS (5)
  - FLUID RETENTION [None]
  - OCULAR ICTERUS [None]
  - RASH [None]
  - SKIN FISSURES [None]
  - STOMATITIS [None]
